FAERS Safety Report 8224690 (Version 2)
Quarter: 2013Q3

REPORT INFORMATION
  Report Type: Report from Study
  Country: US (occurrence: US)
  Receive Date: 20111103
  Receipt Date: 20130814
  Transmission Date: 20140515
  Serious: Yes (Death, Hospitalization)
  Sender: FDA-Public Use
  Company Number: US-ELI_LILLY_AND_COMPANY-US201110006971

PATIENT
  Age: 78 Year
  Sex: Female

DRUGS (2)
  1. TERIPARATIDE [Suspect]
     Indication: OSTEOPOROSIS
     Dosage: UNK, UNKNOWN
  2. TERIPARATIDE [Suspect]
     Dosage: UNK, QD

REACTIONS (4)
  - Death [Fatal]
  - Cardiac disorder [Unknown]
  - Mobility decreased [Unknown]
  - Back pain [Unknown]
